FAERS Safety Report 4886680-5 (Version None)
Quarter: 2005Q4

REPORT INFORMATION
  Report Type: 
  Country: None (occurrence: None)
  Receive Date: 20051220
  Receipt Date: 20050407
  Transmission Date: 20060501
  Serious: Yes (Other)
  Sender: FDA-Public Use
  Company Number: HQWYE879408APR05

PATIENT
  Age: 89 Year
  Sex: Female
  Weight: 68.1 kg

DRUGS (22)
  1. EFFEXOR XR [Suspect]
     Indication: ANXIETY
     Dosage: 225 MG 1X 1 DAY TAPERED OFF, ORAL; 37.5 MG; 75 MG, ORAL
     Route: 048
     Dates: end: 20050101
  2. EFFEXOR XR [Suspect]
     Indication: DEPRESSION
     Dosage: 225 MG 1X 1 DAY TAPERED OFF, ORAL; 37.5 MG; 75 MG, ORAL
     Route: 048
     Dates: end: 20050101
  3. EFFEXOR XR [Suspect]
     Indication: ANXIETY
     Dosage: 225 MG 1X 1 DAY TAPERED OFF, ORAL; 37.5 MG; 75 MG, ORAL
     Route: 048
     Dates: start: 20050101, end: 20050413
  4. EFFEXOR XR [Suspect]
     Indication: DEPRESSION
     Dosage: 225 MG 1X 1 DAY TAPERED OFF, ORAL; 37.5 MG; 75 MG, ORAL
     Route: 048
     Dates: start: 20050101, end: 20050413
  5. EFFEXOR XR [Suspect]
     Indication: ANXIETY
     Dosage: 225 MG 1X 1 DAY TAPERED OFF, ORAL; 37.5 MG; 75 MG, ORAL
     Route: 048
     Dates: start: 20050518, end: 20050525
  6. EFFEXOR XR [Suspect]
     Indication: DEPRESSION
     Dosage: 225 MG 1X 1 DAY TAPERED OFF, ORAL; 37.5 MG; 75 MG, ORAL
     Route: 048
     Dates: start: 20050518, end: 20050525
  7. EFFEXOR XR [Suspect]
     Indication: ANXIETY
     Dosage: 225 MG 1X 1 DAY TAPERED OFF, ORAL; 37.5 MG; 75 MG, ORAL
     Route: 048
     Dates: start: 20050526
  8. EFFEXOR XR [Suspect]
     Indication: DEPRESSION
     Dosage: 225 MG 1X 1 DAY TAPERED OFF, ORAL; 37.5 MG; 75 MG, ORAL
     Route: 048
     Dates: start: 20050526
  9. IPRATROPIUM BROMIDE [Concomitant]
  10. ALBUTEROL [Concomitant]
  11. PULMICORT [Concomitant]
  12. LASIX [Concomitant]
  13. PEPCID [Concomitant]
  14. NORVASC [Concomitant]
  15. TRAMADOL HCL [Concomitant]
  16. ACETAMINOPHEN [Concomitant]
  17. D-S-S (DOCUSATE SODIUM) [Concomitant]
  18. SLOW-MAG (MAGNESIUM CHLORIDE ANHYDROUS) [Concomitant]
  19. PROBANTHINE (PROPANTHELINE BROMIDE) [Concomitant]
  20. COREG [Concomitant]
  21. COZAAR [Concomitant]
  22. CYMBALTA [Concomitant]

REACTIONS (1)
  - HYPONATRAEMIA [None]
